FAERS Safety Report 22066132 (Version 1)
Quarter: 2023Q1

REPORT INFORMATION
  Report Type: Spontaneous
  Country: US (occurrence: None)
  Receive Date: 20230304
  Receipt Date: 20230304
  Transmission Date: 20230418
  Serious: Yes (Hospitalization)
  Sender: FDA-Public Use
  Company Number: None

PATIENT
  Sex: Male

DRUGS (1)
  1. DROXIDOPA [Suspect]
     Active Substance: DROXIDOPA
     Dosage: FREQUENCY : TWICE A DAY;?
     Route: 048
     Dates: start: 20230212

REACTIONS (5)
  - Gait disturbance [None]
  - Fall [None]
  - Dizziness [None]
  - Incoherent [None]
  - Atrial fibrillation [None]
